FAERS Safety Report 8776775 (Version 1)
Quarter: 2012Q4

REPORT INFORMATION
  Report Type: 
  Country: BR (occurrence: BR)
  Receive Date: 20120911
  Receipt Date: 20120911
  Transmission Date: 20130627
  Serious: Yes (Other)
  Sender: FDA-Public Use
  Company Number: BR-BAYER-2012-092893

PATIENT
  Age: 15 Day
  Sex: Male
  Weight: 6 kg

DRUGS (1)
  1. MIRANOVA [Suspect]
     Dosage: UNK
     Route: 064
     Dates: start: 201108

REACTIONS (3)
  - Bronchiolitis [Not Recovered/Not Resolved]
  - Caesarean section [None]
  - Maternal drugs affecting foetus [None]
